FAERS Safety Report 16657860 (Version 1)
Quarter: 2019Q3

REPORT INFORMATION
  Report Type: Spontaneous
  Country: ES (occurrence: ES)
  Receive Date: 20190801
  Receipt Date: 20190801
  Transmission Date: 20191004
  Serious: Yes (Hospitalization)
  Sender: FDA-Public Use
  Company Number: ES-SA-2019SA204133

PATIENT
  Age: 66 Year
  Sex: Male

DRUGS (1)
  1. CLEXANE [Suspect]
     Active Substance: ENOXAPARIN SODIUM
     Indication: ATRIAL FIBRILLATION
     Dosage: 100 MG/12 H
     Route: 058
     Dates: start: 20190305, end: 20190308

REACTIONS (3)
  - Incision site haemorrhage [Recovered/Resolved]
  - Condition aggravated [Recovered/Resolved]
  - Abdominal wall haematoma [Recovering/Resolving]

NARRATIVE: CASE EVENT DATE: 20190308
